FAERS Safety Report 21927289 (Version 1)
Quarter: 2023Q1

REPORT INFORMATION
  Report Type: Spontaneous
  Country: US (occurrence: None)
  Receive Date: 20230129
  Receipt Date: 20230129
  Transmission Date: 20230418
  Serious: Yes (Disabling)
  Sender: FDA-Public Use
  Company Number: None

PATIENT
  Age: 49 Year
  Sex: Female
  Weight: 90 kg

DRUGS (8)
  1. LEVOFLOXACIN [Suspect]
     Active Substance: LEVOFLOXACIN
     Indication: Antibiotic therapy
     Dosage: OTHER QUANTITY : 7 TABLET(S);?FREQUENCY : DAILY;?
     Route: 048
     Dates: start: 20221214, end: 20221228
  2. NURTEC ODT [Concomitant]
     Active Substance: RIMEGEPANT SULFATE
  3. Notriptyline [Concomitant]
  4. Ouviviq [Concomitant]
  5. UBRELVY [Concomitant]
     Active Substance: UBROGEPANT
  6. aspisirin [Concomitant]
  7. TYLENOL [Concomitant]
     Active Substance: ACETAMINOPHEN
  8. VITAMINS [Concomitant]
     Active Substance: VITAMINS

REACTIONS (16)
  - Pain [None]
  - Arthralgia [None]
  - Joint stiffness [None]
  - Insomnia [None]
  - Anxiety [None]
  - Disturbance in attention [None]
  - Chest pain [None]
  - Dyspnoea [None]
  - Hyperhidrosis [None]
  - Feeling abnormal [None]
  - Tendon rupture [None]
  - Drug ineffective [None]
  - Crying [None]
  - Impaired work ability [None]
  - Impaired driving ability [None]
  - Partner stress [None]

NARRATIVE: CASE EVENT DATE: 20221228
